FAERS Safety Report 4801579-8 (Version None)
Quarter: 2005Q4

REPORT INFORMATION
  Report Type: 
  Country: None (occurrence: None)
  Receive Date: 20051011
  Receipt Date: 20050927
  Transmission Date: 20060501
  Serious: Yes (Other)
  Sender: FDA-Public Use
  Company Number: S05-USA-04475-01

PATIENT
  Age: 84 Year
  Sex: Female

DRUGS (7)
  1. NAMENDA [Suspect]
     Indication: DEMENTIA
     Dosage: 15 MG QD PO
     Route: 048
     Dates: start: 20050922
  2. NAMENDA [Suspect]
     Indication: DEMENTIA
     Dosage: 5 MG QD PO
     Route: 048
     Dates: start: 20050908, end: 20050914
  3. NAMENDA [Suspect]
     Indication: DEMENTIA
     Dosage: 5 MG BID PO
     Route: 048
     Dates: start: 20050915, end: 20050921
  4. IMMUNOGLOBULIN (NOS) [Concomitant]
  5. LIPITOR [Concomitant]
  6. SYNTHROID [Concomitant]
  7. NORVASC [Concomitant]

REACTIONS (3)
  - CONDITION AGGRAVATED [None]
  - EYE IRRITATION [None]
  - PEMPHIGOID [None]
